FAERS Safety Report 6364810-6 (Version None)
Quarter: 2009Q3

REPORT INFORMATION
  Report Type: 
  Country: None (occurrence: None)
  Receive Date: 20090919
  Receipt Date: 20090728
  Transmission Date: 20100115
  Serious: No
  Sender: FDA-Public Use
  Company Number: US-ABBOTT-09P-163-0588508-00

PATIENT
  Sex: Female
  Weight: 96.702 kg

DRUGS (9)
  1. HUMIRA [Suspect]
     Indication: CROHN'S DISEASE
     Dates: start: 20090714, end: 20090714
  2. BUSPIRONE HCL [Concomitant]
     Indication: DEPRESSION
  3. DIFLUCAN [Concomitant]
     Indication: DRUG USE FOR UNKNOWN INDICATION
  4. EFFEXOR [Concomitant]
     Indication: DEPRESSION
  5. NYSTATIN [Concomitant]
     Indication: DRUG USE FOR UNKNOWN INDICATION
  6. PERCOCET [Concomitant]
     Indication: PAIN
  7. PREDNISONE [Concomitant]
     Indication: CROHN'S DISEASE
  8. PROMETHAZINE [Concomitant]
     Indication: NAUSEA
  9. ZOLPIDEM [Concomitant]
     Indication: DRUG USE FOR UNKNOWN INDICATION

REACTIONS (5)
  - GRIP STRENGTH DECREASED [None]
  - MUSCULAR WEAKNESS [None]
  - PALPITATIONS [None]
  - SOMNOLENCE [None]
  - TREMOR [None]
